APPROVED DRUG PRODUCT: GLYCINE 1.5% IN PLASTIC CONTAINER
Active Ingredient: GLYCINE
Strength: 1.5GM/100ML
Dosage Form/Route: SOLUTION;IRRIGATION
Application: N017633 | Product #001
Applicant: HOSPIRA INC
Approved: Approved Prior to Jan 1, 1982 | RLD: No | RS: No | Type: DISCN